FAERS Safety Report 15275053 (Version 1)
Quarter: 2018Q3

REPORT INFORMATION
  Report Type: Spontaneous
  Country: US (occurrence: US)
  Receive Date: 20180814
  Receipt Date: 20180814
  Transmission Date: 20181010
  Serious: No
  Sender: FDA-Public Use
  Company Number: US-PFIZER INC-2018325728

PATIENT
  Age: 49 Year
  Sex: Female
  Weight: 74.84 kg

DRUGS (1)
  1. LYRICA [Suspect]
     Active Substance: PREGABALIN
     Indication: RADICULOPATHY
     Dosage: 150 MG, 1X/DAY (AT NIGHT)
     Route: 048
     Dates: end: 20180807

REACTIONS (3)
  - Memory impairment [Unknown]
  - Dizziness [Not Recovered/Not Resolved]
  - Drug intolerance [Unknown]
